FAERS Safety Report 9782134 (Version 1)
Quarter: 2013Q4

REPORT INFORMATION
  Report Type: Spontaneous
  Country: FR (occurrence: FR)
  Receive Date: 20131226
  Receipt Date: 20131226
  Transmission Date: 20140711
  Serious: Yes (Life-Threatening)
  Sender: FDA-Public Use
  Company Number: FR-BRISTOL-MYERS SQUIBB COMPANY-19942309

PATIENT
  Age: 72 Year
  Sex: Female

DRUGS (14)
  1. METFORMIN HCL [Suspect]
     Indication: TYPE 2 DIABETES MELLITUS
     Route: 048
  2. DAFALGAN [Suspect]
     Dosage: ONGOING
     Route: 048
  3. LEVOTHYROX [Suspect]
     Indication: HYPOTHYROIDISM
     Dosage: SCORED TABLET
     Route: 048
  4. REPAGLINIDE [Suspect]
     Indication: TYPE 2 DIABETES MELLITUS
     Dosage: ONGOING
     Route: 048
  5. JANUMET [Suspect]
     Indication: TYPE 2 DIABETES MELLITUS
     Dosage: 1DF: 50MG/1000MG,ONGOING
     Route: 048
     Dates: start: 20130622
  6. LOXEN [Suspect]
     Indication: HYPERTENSION
     Dosage: ONGOING,CAPSULE
     Route: 048
  7. DIFFU-K [Suspect]
     Dosage: CAPSULES, ONGOING
     Route: 048
  8. LASILIX [Suspect]
     Dosage: ONGOING
     Route: 048
  9. CELIPROLOL HCL [Suspect]
     Indication: HYPERTENSION
     Dosage: ONGOING
     Route: 048
  10. ALLOPURINOL [Suspect]
     Dosage: ONGOING
     Route: 048
  11. TARDYFERON [Suspect]
     Dosage: ONGOING
     Route: 048
  12. OMEPRAZOLE [Suspect]
     Dosage: ONGOING
     Route: 048
  13. STILNOX [Suspect]
     Dosage: ONGOING,TABLET
     Route: 048
  14. BICIRKAN [Suspect]
     Dosage: ONGOING
     Route: 048

REACTIONS (1)
  - Pancreatic carcinoma metastatic [Not Recovered/Not Resolved]
